FAERS Safety Report 21571735 (Version 1)
Quarter: 2022Q4

REPORT INFORMATION
  Report Type: Spontaneous
  Country: FR (occurrence: FR)
  Receive Date: 20221109
  Receipt Date: 20221109
  Transmission Date: 20230113
  Serious: Yes (Other)
  Sender: FDA-Public Use
  Company Number: None

PATIENT
  Age: 9 Year
  Sex: Female
  Weight: 33 kg

DRUGS (10)
  1. CARBOPLATIN [Suspect]
     Active Substance: CARBOPLATIN
     Indication: Optic glioma
     Dosage: CARBOPLATINE; UNIT DOSE: 340MG; FREQ TIME: 1MONTHS; DURATION: 189DAYS
     Dates: start: 20141022, end: 20150429
  2. ONCOVIN [Suspect]
     Active Substance: VINCRISTINE SULFATE
     Indication: Optic glioma
     Dosage: UNIT DOSE: 0.45MG; FREQ TIME: 1WEEKS; DURATION: 189DAYS
     Dates: start: 20141022, end: 20150429
  3. LOMUSTINE [Suspect]
     Active Substance: LOMUSTINE
     Indication: Optic glioma
     Dosage: UNIT DOSE: 57MG; FREQ TIME: 1MONTHS; DURATION: 319DAYS
     Dates: start: 20160810, end: 20170625
  4. VINBLASTINE SULFATE [Suspect]
     Active Substance: VINBLASTINE SULFATE
     Indication: Optic glioma
     Dosage: UNIT DOSE: 1.85MG; FREQ TIME: 1WEEKS; DURATION: 555DAYS
     Dates: start: 20150617, end: 20161223
  5. PROCARBAZINE [Suspect]
     Active Substance: PROCARBAZINE
     Indication: Optic glioma
     Dosage: UNIT DOSE: 104MG; FREQ TIME: 1MONTHS; DURATION: 319DAYS
     Dates: start: 20160810, end: 20170625
  6. KEPPRA [Suspect]
     Active Substance: LEVETIRACETAM
     Indication: Seizure prophylaxis
     Dosage: UNIT DOSE: 1000MG; FREQ TIME: 1DAY; THERAPY END DATE: NASK
     Dates: start: 20220811
  7. DECAPEPTYL (ACETATE) [Suspect]
     Active Substance: TRIPTORELIN ACETATE
     Indication: Precocious puberty
     Dosage: UNIT DOSE: 22.5MG; FREQ TIME: 6MONTHS; THERAPY END DATE: NASK
     Dates: start: 201907
  8. HYDROCORTISONE ACETATE [Suspect]
     Active Substance: HYDROCORTISONE ACETATE
     Indication: Central hypothyroidism
     Dosage: UNIT DOSE: 10MG; FREQ TIME: 1DAY; THERAPY END DATE : NASK
     Dates: start: 20220324
  9. LEVOTHYROXINE SODIUM [Suspect]
     Active Substance: LEVOTHYROXINE SODIUM
     Indication: Central hypothyroidism
     Dosage: UNIT DOSE: 11GTT; FREQ TIME: 1DAY; THERAPY START DATE : ASKU
  10. THIOGUANINE [Suspect]
     Active Substance: THIOGUANINE
     Indication: Optic glioma
     Dosage: UNIT DOSE: 192MG; FREQ TIME: 1MONTHS; DURATION: 319DAYS
     Dates: start: 20160810, end: 20170625

REACTIONS (1)
  - Type 2 diabetes mellitus [Not Recovered/Not Resolved]

NARRATIVE: CASE EVENT DATE: 20220819
